FAERS Safety Report 6531098-2 (Version None)
Quarter: 2010Q1

REPORT INFORMATION
  Report Type: 
  Country: None (occurrence: None)
  Receive Date: 20100108
  Receipt Date: 20091231
  Transmission Date: 20100710
  Serious: Yes (Other)
  Sender: FDA-Public Use
  Company Number: US-BAYER-200944100NA

PATIENT
  Sex: Female

DRUGS (1)
  1. MIRENA [Suspect]
     Indication: DRUG USE FOR UNKNOWN INDICATION
     Dosage: CONTINUOUS
     Route: 015
     Dates: start: 20060601

REACTIONS (8)
  - ABDOMINAL DISTENSION [None]
  - AMENORRHOEA [None]
  - ANXIETY [None]
  - BREAST PAIN [None]
  - DEPRESSION [None]
  - LOSS OF CONSCIOUSNESS [None]
  - PROCEDURAL PAIN [None]
  - WEIGHT INCREASED [None]
